FAERS Safety Report 9692012 (Version 3)
Quarter: 2014Q1

REPORT INFORMATION
  Report Type: Spontaneous
  Country: BR (occurrence: BR)
  Receive Date: 20131118
  Receipt Date: 20140214
  Transmission Date: 20141002
  Serious: Yes (Hospitalization)
  Sender: FDA-Public Use
  Company Number: BR-BIOGENIDEC-2013BI053014

PATIENT
  Age: 37 Year
  Sex: Female

DRUGS (6)
  1. AVONEX [Suspect]
     Indication: MULTIPLE SCLEROSIS
     Route: 030
     Dates: start: 20130603, end: 201308
  2. PAMELOR [Concomitant]
     Indication: DEPRESSION
  3. FRISIUM [Concomitant]
     Indication: ANXIETY
  4. MANTIDAN [Concomitant]
     Indication: TREMOR
  5. PANTOPRAZOLE [Concomitant]
  6. DIOVAN [Concomitant]
     Indication: HYPERTENSION

REACTIONS (9)
  - Sensation of pressure [Unknown]
  - Tachycardia [Recovered/Resolved]
  - Pyrexia [Recovered/Resolved]
  - Chills [Recovered/Resolved]
  - Rhinorrhoea [Unknown]
  - Abnormal sensation in eye [Not Recovered/Not Resolved]
  - Eye pain [Not Recovered/Not Resolved]
  - Hypertension [Unknown]
  - Headache [Recovered/Resolved]
